APPROVED DRUG PRODUCT: MELPHALAN HYDROCHLORIDE
Active Ingredient: MELPHALAN HYDROCHLORIDE
Strength: EQ 50MG BASE/VIAL
Dosage Form/Route: INJECTABLE;INJECTION
Application: A204773 | Product #001
Applicant: PH HEALTH LTD
Approved: Aug 22, 2016 | RLD: No | RS: No | Type: DISCN